FAERS Safety Report 9147980 (Version 4)
Quarter: 2013Q3

REPORT INFORMATION
  Report Type: Spontaneous
  Country: BR (occurrence: BR)
  Receive Date: 20130307
  Receipt Date: 20130819
  Transmission Date: 20140515
  Serious: Yes (Other)
  Sender: FDA-Public Use
  Company Number: BR-BRISTOL-MYERS SQUIBB COMPANY-16961575

PATIENT
  Age: 60 Year
  Sex: Female

DRUGS (6)
  1. SPRYCEL [Suspect]
     Dosage: TABS; PREV DOSE:50MG?100MG-2 TABS OF 50 MG
     Route: 048
     Dates: start: 201107
  2. PURAN T4 [Concomitant]
  3. ALENDRONATE SODIUM [Concomitant]
  4. AMITRIPTYLINE [Concomitant]
  5. FLUNARIZINE HCL [Concomitant]
  6. ATENOLOL [Concomitant]

REACTIONS (11)
  - Malignant neoplasm progression [Unknown]
  - Cardiovascular disorder [Unknown]
  - Laboratory test abnormal [Unknown]
  - Incorrect dose administered [Unknown]
  - Influenza [Recovering/Resolving]
  - Fatigue [Recovering/Resolving]
  - Muscular weakness [Recovering/Resolving]
  - Weight increased [Unknown]
  - Anxiety [Unknown]
  - Aphthous stomatitis [Recovered/Resolved]
  - Stasis dermatitis [Unknown]
